FAERS Safety Report 6580583-6 (Version None)
Quarter: 2010Q1

REPORT INFORMATION
  Report Type: 
  Country: None (occurrence: None)
  Receive Date: 20100212
  Receipt Date: 20100202
  Transmission Date: 20100710
  Serious: Yes (Other)
  Sender: FDA-Public Use
  Company Number: CA-PURDUE-CAN-2010-0001228

PATIENT
  Age: 19 Year
  Sex: Male

DRUGS (5)
  1. DILAUDID [Suspect]
     Indication: DRUG USE FOR UNKNOWN INDICATION
  2. MARIJUANA [Suspect]
     Indication: DRUG USE FOR UNKNOWN INDICATION
     Dosage: UNK
     Route: 055
     Dates: start: 20060101
  3. METHYLENEDIOXYMETHAMPHETAMINE [Suspect]
     Indication: DRUG USE FOR UNKNOWN INDICATION
  4. COCAINE [Suspect]
     Indication: DRUG USE FOR UNKNOWN INDICATION
  5. ALCOHOL [Suspect]
     Indication: DRUG USE FOR UNKNOWN INDICATION
     Route: 048

REACTIONS (6)
  - CARDIAC DISORDER [None]
  - DECREASED APPETITE [None]
  - DRUG DEPENDENCE [None]
  - IRRITABILITY [None]
  - SUBSTANCE ABUSE [None]
  - WEIGHT DECREASED [None]
